APPROVED DRUG PRODUCT: CEPTAZ
Active Ingredient: CEFTAZIDIME
Strength: 2GM/VIAL
Dosage Form/Route: INJECTABLE;INJECTION
Application: N050646 | Product #003
Applicant: GLAXOSMITHKLINE
Approved: Sep 27, 1990 | RLD: No | RS: No | Type: DISCN